FAERS Safety Report 6843056-9 (Version None)
Quarter: 2010Q3

REPORT INFORMATION
  Report Type: 
  Country: None (occurrence: None)
  Receive Date: 20100712
  Receipt Date: 20100505
  Transmission Date: 20110219
  Serious: Yes (Other)
  Sender: FDA-Public Use
  Company Number: FKO201000176

PATIENT
  Age: 58 Year
  Sex: Male

DRUGS (8)
  1. DOXORUBICIN (MANUFACTURER UNKNOWN) (DOXORUBICIN HYDROCHLORIDE) (DOXORU [Suspect]
     Indication: LYMPHOMA
  2. BLEOMYCIN (MANUFACTURER UNKNOWN) (BLEOMYCIN) (BLEOMYCIN) [Suspect]
     Indication: LYMPHOMA
  3. DACARBAZINE [Suspect]
     Indication: LYMPHOMA
  4. CHLORMETHINE (CHLORMETHINE) (CHLORMETHINE) [Concomitant]
  5. VINCRISTINE [Concomitant]
  6. PROCARBAZINE (PROCARBAZINE) (PROCARBAZINE) [Concomitant]
  7. VINBLASTINE (VINBLASTINE) (VINBLASTINE) [Concomitant]
  8. PREDNISOLONE [Concomitant]

REACTIONS (4)
  - ANOSMIA [None]
  - HYPOSMIA [None]
  - NASAL SEPTUM DEVIATION [None]
  - OLFACTORY NERVE DISORDER [None]
